FAERS Safety Report 17657772 (Version 4)
Quarter: 2020Q3

REPORT INFORMATION
  Report Type: Report from Study
  Country: AU (occurrence: AU)
  Receive Date: 20200411
  Receipt Date: 20200802
  Transmission Date: 20201102
  Serious: Yes (Death, Hospitalization)
  Sender: FDA-Public Use
  Company Number: AU-ROCHE-2392716

PATIENT
  Age: 68 Year
  Sex: Female
  Weight: 72.4 kg

DRUGS (106)
  1. KENACOMB (AUSTRALIA) [Concomitant]
     Route: 061
     Dates: start: 20200213
  2. FILGRASTIM [Concomitant]
     Active Substance: FILGRASTIM
     Route: 058
     Dates: start: 20190605, end: 20190703
  3. NORMAL SALINE [Concomitant]
     Active Substance: SODIUM CHLORIDE
     Route: 042
     Dates: start: 20190706, end: 20190706
  4. NORMAL SALINE [Concomitant]
     Active Substance: SODIUM CHLORIDE
     Route: 042
     Dates: start: 20190822, end: 20190822
  5. QUETIAPINE. [Concomitant]
     Active Substance: QUETIAPINE
     Indication: DEPRESSION
     Route: 048
     Dates: start: 201506
  6. FUNGILIN [Concomitant]
     Active Substance: AMPHOTERICIN B
     Indication: ORAL CANDIDIASIS
     Route: 061
     Dates: start: 20190605, end: 20190615
  7. PARACETAMOL [Concomitant]
     Active Substance: ACETAMINOPHEN
     Indication: PREMEDICATION
     Route: 048
     Dates: start: 20190627
  8. POSACONAZOLE [Concomitant]
     Active Substance: POSACONAZOLE
     Route: 048
     Dates: start: 20200221
  9. CLAVULANIC ACID [Concomitant]
     Active Substance: CLAVULANIC ACID
     Indication: UROSEPSIS
     Dosage: 1 TABLET DAILY.
     Route: 048
     Dates: start: 20190828, end: 20190918
  10. FILGRASTIM [Concomitant]
     Active Substance: FILGRASTIM
     Dosage: ONCE DAILY ON MONDAY, WEDNESDAY AND FRIDAY
     Route: 058
     Dates: start: 20190731, end: 20190807
  11. FILGRASTIM [Concomitant]
     Active Substance: FILGRASTIM
     Dosage: ONCE DAILY ON MONDAY, WEDNESDAY AND FRIDAY
     Route: 058
     Dates: start: 20190713, end: 20190730
  12. NORMAL SALINE [Concomitant]
     Active Substance: SODIUM CHLORIDE
     Indication: MUSCLE SPASMS
     Route: 042
     Dates: start: 20190704, end: 20190704
  13. NORMAL SALINE [Concomitant]
     Active Substance: SODIUM CHLORIDE
     Route: 042
     Dates: start: 20190731, end: 20190731
  14. NORMAL SALINE [Concomitant]
     Active Substance: SODIUM CHLORIDE
     Route: 042
     Dates: start: 20190801, end: 20190801
  15. NORMAL SALINE [Concomitant]
     Active Substance: SODIUM CHLORIDE
     Route: 042
     Dates: start: 20190802, end: 20190803
  16. GENTAMICIN. [Concomitant]
     Active Substance: GENTAMICIN
     Indication: DIARRHOEA
     Route: 042
     Dates: start: 20190731, end: 20190731
  17. DIAZEPAM. [Concomitant]
     Active Substance: DIAZEPAM
     Indication: MUSCLE SPASMS
     Route: 048
     Dates: start: 20190707, end: 20190707
  18. METOCLOPRAMIDE. [Concomitant]
     Active Substance: METOCLOPRAMIDE
     Route: 048
     Dates: start: 20190627
  19. DEXAMETHASONE. [Concomitant]
     Active Substance: DEXAMETHASONE
     Indication: PREMEDICATION
     Route: 042
     Dates: start: 20190627
  20. GASTROSTOP [Concomitant]
     Indication: DIARRHOEA
     Route: 048
     Dates: start: 20190704
  21. MORPHINE [Concomitant]
     Active Substance: MORPHINE
     Route: 042
     Dates: start: 20190707, end: 20190707
  22. HARTMANN^S SOLUTION [Concomitant]
     Active Substance: CALCIUM CHLORIDE\POTASSIUM CHLORIDE\SODIUM CHLORIDE\SODIUM LACTATE
     Indication: DIARRHOEA
     Route: 042
     Dates: start: 20190801, end: 20190801
  23. TRAMADOL. [Concomitant]
     Active Substance: TRAMADOL
     Route: 042
     Dates: start: 20190925, end: 20190925
  24. DEXAMETHASONE. [Concomitant]
     Active Substance: DEXAMETHASONE
     Route: 042
     Dates: start: 20190925, end: 20190925
  25. MAGNESIUM SULFATE. [Concomitant]
     Active Substance: MAGNESIUM SULFATE
     Indication: INFUSION RELATED REACTION
     Route: 042
     Dates: start: 20190708, end: 20190708
  26. KETAMINE [Concomitant]
     Active Substance: KETAMINE
     Indication: MUSCLE SPASMS
     Route: 042
     Dates: start: 20190707, end: 20190707
  27. DIAZEPAM. [Concomitant]
     Active Substance: DIAZEPAM
     Indication: MUSCLE SPASMS
     Route: 042
     Dates: start: 20191125, end: 20200209
  28. AMOXICILLIN. [Concomitant]
     Active Substance: AMOXICILLIN
     Route: 048
     Dates: start: 20190808, end: 20190821
  29. FILGRASTIM [Concomitant]
     Active Substance: FILGRASTIM
     Dosage: ONCE DAILY ON MONDAY, WEDNESDAY AND FRIDAY
     Route: 058
     Dates: start: 20190704, end: 20190712
  30. NORMAL SALINE [Concomitant]
     Active Substance: SODIUM CHLORIDE
     Route: 042
     Dates: start: 20190803, end: 20190803
  31. TAZOCIN [Concomitant]
     Active Substance: PIPERACILLIN SODIUM\TAZOBACTAM SODIUM
     Indication: INFUSION RELATED REACTION
     Route: 042
     Dates: start: 20190704, end: 20190709
  32. TARGIN [Concomitant]
     Active Substance: NALOXONE HYDROCHLORIDE\OXYCODONE HYDROCHLORIDE
     Indication: PAIN
     Route: 048
     Dates: start: 201604, end: 20191216
  33. TARGIN [Concomitant]
     Active Substance: NALOXONE HYDROCHLORIDE\OXYCODONE HYDROCHLORIDE
     Route: 048
     Dates: start: 20191217
  34. QUETIAPINE. [Concomitant]
     Active Substance: QUETIAPINE
     Indication: ANXIETY
  35. NEXIUM [Concomitant]
     Active Substance: ESOMEPRAZOLE MAGNESIUM
     Indication: GASTROOESOPHAGEAL REFLUX DISEASE
     Route: 048
     Dates: start: 20180323
  36. ALLOPURINOL. [Concomitant]
     Active Substance: ALLOPURINOL
     Route: 048
     Dates: start: 20200217
  37. ONDANSETRON [Concomitant]
     Active Substance: ONDANSETRON
     Indication: DIARRHOEA
     Dates: start: 20190827, end: 20190828
  38. AUGMENTIN DUO FORTE [Concomitant]
     Active Substance: AMOXICILLIN\CLAVULANATE POTASSIUM
     Indication: URINARY TRACT INFECTION
     Route: 048
     Dates: start: 20190221
  39. AUGMENTIN DUO FORTE [Concomitant]
     Active Substance: AMOXICILLIN\CLAVULANATE POTASSIUM
     Route: 048
     Dates: start: 20191011, end: 20191215
  40. DEXAMETHASONE. [Concomitant]
     Active Substance: DEXAMETHASONE
     Route: 042
     Dates: start: 20190925, end: 20190925
  41. ALBUMEX 4 [Concomitant]
     Indication: DIARRHOEA
     Route: 042
     Dates: start: 20190801, end: 20190801
  42. OSTELIN [Concomitant]
     Indication: VITAMIN D DEFICIENCY
     Route: 048
     Dates: start: 20190504, end: 20200210
  43. OBINUTUZUMAB. [Suspect]
     Active Substance: OBINUTUZUMAB
     Indication: B-CELL LYMPHOMA
     Dosage: DOSAGE: 1000 MG INTRAVENOUSLY ON DAYS 1, 8, AND 15 OF CYCLE 1, THEN 1000 MG ON DAY 1 OF CYCLES 2 TO
     Route: 042
     Dates: start: 20190627, end: 20200210
  44. ZANUBRUTINIB [Suspect]
     Active Substance: ZANUBRUTINIB
     Indication: B-CELL LYMPHOMA
     Dosage: LAST DOSAGE PRIOR TO SAE: 22/AUG/2019
     Route: 048
     Dates: start: 20190627, end: 20200210
  45. AMOXICILLIN. [Concomitant]
     Active Substance: AMOXICILLIN
     Indication: URINARY TRACT INFECTION
     Route: 048
     Dates: start: 20190828, end: 20190918
  46. NORMAL SALINE [Concomitant]
     Active Substance: SODIUM CHLORIDE
     Route: 042
     Dates: start: 20190705, end: 20190705
  47. PROMETHAZINE [Concomitant]
     Active Substance: PROMETHAZINE HYDROCHLORIDE
     Indication: PREMEDICATION
     Route: 042
     Dates: start: 20190725
  48. CEFTRIAXONE. [Concomitant]
     Active Substance: CEFTRIAXONE
     Indication: DIARRHOEA
     Route: 042
     Dates: start: 20190802, end: 20190806
  49. TAZOCIN [Concomitant]
     Active Substance: PIPERACILLIN SODIUM\TAZOBACTAM SODIUM
     Indication: DIARRHOEA
     Dates: start: 20190731, end: 20190731
  50. FUROSEMIDE. [Concomitant]
     Active Substance: FUROSEMIDE
     Route: 048
     Dates: start: 20190706, end: 20190706
  51. DIAZEPAM. [Concomitant]
     Active Substance: DIAZEPAM
     Indication: ANXIETY
  52. PANADOL [Concomitant]
     Active Substance: ACETAMINOPHEN
     Indication: PAIN
     Route: 048
     Dates: start: 201812
  53. ACICLOVIR [Concomitant]
     Active Substance: ACYCLOVIR
     Route: 048
     Dates: start: 20190529
  54. MORPHINE [Concomitant]
     Active Substance: MORPHINE
     Indication: MUSCLE SPASMS
     Route: 058
     Dates: start: 20190707, end: 20190707
  55. MORPHINE [Concomitant]
     Active Substance: MORPHINE
     Route: 042
     Dates: start: 20190707, end: 20190708
  56. ONDANSETRON [Concomitant]
     Active Substance: ONDANSETRON
     Indication: DIARRHOEA
     Route: 042
     Dates: start: 20190804, end: 20190804
  57. LIGNOCAINE [Concomitant]
     Active Substance: LIDOCAINE HYDROCHLORIDE
  58. NILSTAT [Concomitant]
     Active Substance: NYSTATIN
     Indication: ORAL CANDIDIASIS
     Route: 061
     Dates: start: 20200219
  59. FENTANYL. [Concomitant]
     Active Substance: FENTANYL
     Route: 042
     Dates: start: 20190925, end: 20190925
  60. PACKED RED BLOOD CELLS [Concomitant]
     Active Substance: HUMAN RED BLOOD CELL
     Indication: ANAEMIA
     Dosage: 1 UNITS
     Route: 042
     Dates: start: 20190704, end: 20190706
  61. KETAMINE [Concomitant]
     Active Substance: KETAMINE
     Route: 042
     Dates: start: 20190707, end: 20190708
  62. DAKTARIN [MICONAZOLE] [Concomitant]
     Active Substance: MICONAZOLE
     Indication: RASH
     Dosage: 1 OTHER UNITS
     Route: 061
     Dates: start: 20190919, end: 20191002
  63. FILGRASTIM [Concomitant]
     Active Substance: FILGRASTIM
     Route: 058
     Dates: start: 20191114, end: 20191120
  64. FILGRASTIM [Concomitant]
     Active Substance: FILGRASTIM
     Dosage: MONDAY, WEDNESDAY,?FRIDAY
     Route: 058
     Dates: start: 20191125, end: 20200209
  65. NORMAL SALINE [Concomitant]
     Active Substance: SODIUM CHLORIDE
     Indication: DIARRHOEA
     Route: 042
     Dates: start: 20190705, end: 20190705
  66. NORMAL SALINE [Concomitant]
     Active Substance: SODIUM CHLORIDE
     Route: 042
     Dates: start: 20190919, end: 20190919
  67. BACTRIM DS [Concomitant]
     Active Substance: SULFAMETHOXAZOLE\TRIMETHOPRIM
     Route: 048
     Dates: start: 20190627
  68. BUSCOPAN [Concomitant]
     Active Substance: BUTYLSCOPOLAMINE BROMIDE
     Indication: MUSCLE SPASMS
     Route: 048
     Dates: start: 20190707, end: 20190707
  69. POTASSIUM CHLORIDE. [Concomitant]
     Active Substance: POTASSIUM CHLORIDE
     Dates: start: 20190709, end: 20200210
  70. FENTANYL. [Concomitant]
     Active Substance: FENTANYL
     Route: 042
     Dates: start: 20190925, end: 20190925
  71. TRAMADOL. [Concomitant]
     Active Substance: TRAMADOL
     Route: 042
     Dates: start: 20190925, end: 20190925
  72. PACKED RED BLOOD CELLS [Concomitant]
     Active Substance: HUMAN RED BLOOD CELL
     Dosage: 1 UNITS
     Route: 042
     Dates: start: 20190920, end: 20190920
  73. DIAZEPAM. [Concomitant]
     Active Substance: DIAZEPAM
     Indication: NEUTROPENIA
     Route: 042
     Dates: start: 20190707, end: 20190707
  74. MICONAZOLE. [Concomitant]
     Active Substance: MICONAZOLE
     Route: 061
     Dates: start: 20190919, end: 20191002
  75. NORMAL SALINE [Concomitant]
     Active Substance: SODIUM CHLORIDE
     Indication: INFUSION RELATED REACTION
     Route: 042
     Dates: start: 20190627
  76. NORMAL SALINE [Concomitant]
     Active Substance: SODIUM CHLORIDE
     Route: 042
     Dates: start: 20190708, end: 20190708
  77. TARGIN [Concomitant]
     Active Substance: NALOXONE HYDROCHLORIDE\OXYCODONE HYDROCHLORIDE
     Route: 048
     Dates: start: 20191217
  78. OXYCODONE [Concomitant]
     Active Substance: OXYCODONE
     Indication: PAIN
     Route: 048
     Dates: start: 20180602
  79. HARTMANN^S SOLUTION [Concomitant]
     Active Substance: CALCIUM CHLORIDE\POTASSIUM CHLORIDE\SODIUM CHLORIDE\SODIUM LACTATE
     Route: 042
     Dates: start: 20190925, end: 20190925
  80. PROPOFOL. [Concomitant]
     Active Substance: PROPOFOL
     Route: 042
     Dates: start: 20190925, end: 20190925
  81. PACKED RED BLOOD CELLS [Concomitant]
     Active Substance: HUMAN RED BLOOD CELL
     Dosage: 2 UNITS
     Route: 042
     Dates: start: 20190801, end: 20190801
  82. PACKED RED BLOOD CELLS [Concomitant]
     Active Substance: HUMAN RED BLOOD CELL
     Dosage: 2 UNITS
     Route: 042
     Dates: start: 20190823, end: 20190823
  83. MEROPENEM. [Concomitant]
     Active Substance: MEROPENEM
     Indication: DIARRHOEA
     Route: 042
     Dates: start: 20190731, end: 20190801
  84. CEPHAZOLIN [Concomitant]
     Active Substance: CEFAZOLIN
     Route: 042
     Dates: start: 20190925, end: 20190925
  85. FILGRASTIM [Concomitant]
     Active Substance: FILGRASTIM
     Indication: NEUTROPHIL COUNT DECREASED
     Dosage: ONCE DAILY ON MONDAY, WEDNESDAY AND FRIDAY
     Route: 058
     Dates: start: 20190906, end: 20191113
  86. FILGRASTIM [Concomitant]
     Active Substance: FILGRASTIM
     Indication: NEUTROPENIA
     Dosage: ONCE DAILY ON MONDAY, WEDNESDAY AND FRIDAY
     Route: 058
     Dates: start: 20190808, end: 20190905
  87. NORMAL SALINE [Concomitant]
     Active Substance: SODIUM CHLORIDE
     Route: 042
     Dates: start: 20190725, end: 20190725
  88. DIAZEPAM. [Concomitant]
     Active Substance: DIAZEPAM
     Indication: NEUTROPENIA
     Route: 048
     Dates: start: 20200225
  89. XARELTO [Concomitant]
     Active Substance: RIVAROXABAN
     Indication: PULMONARY EMBOLISM
     Route: 048
     Dates: start: 20190522
  90. ALLOPURINOL. [Concomitant]
     Active Substance: ALLOPURINOL
     Route: 048
     Dates: start: 20190627
  91. LORATADINE. [Concomitant]
     Active Substance: LORATADINE
     Indication: PREMEDICATION
     Route: 048
     Dates: start: 20190627
  92. HARTMANN^S SOLUTION [Concomitant]
     Active Substance: CALCIUM CHLORIDE\POTASSIUM CHLORIDE\SODIUM CHLORIDE\SODIUM LACTATE
     Indication: MUSCLE SPASMS
     Route: 042
     Dates: start: 20190707, end: 20190708
  93. NILSTAT [Concomitant]
     Active Substance: NYSTATIN
     Route: 061
     Dates: start: 20190706, end: 20190805
  94. PACKED RED BLOOD CELLS [Concomitant]
     Active Substance: HUMAN RED BLOOD CELL
     Dosage: 1 UNITS
     Route: 042
     Dates: start: 20190706, end: 20190706
  95. POTASSIUM PHOSPHATE [Concomitant]
     Active Substance: POTASSIUM PHOSPHATE
     Indication: INFUSION RELATED REACTION
     Route: 042
     Dates: start: 20190708, end: 20190708
  96. SLOW?K [Concomitant]
     Active Substance: POTASSIUM CHLORIDE
     Indication: INFUSION RELATED REACTION
     Route: 048
     Dates: start: 20190709
  97. DIAZEPAM. [Concomitant]
     Active Substance: DIAZEPAM
     Indication: ANXIETY
  98. NORMAL SALINE [Concomitant]
     Active Substance: SODIUM CHLORIDE
     Route: 042
     Dates: start: 20190705, end: 20190706
  99. URAL SACHET [Concomitant]
     Route: 048
     Dates: start: 20190704
  100. VENLAFAXINE SR [Concomitant]
     Indication: DEPRESSION
     Route: 048
     Dates: start: 2005
  101. LORAZEPAM. [Concomitant]
     Active Substance: LORAZEPAM
     Indication: ANXIETY
     Route: 060
     Dates: start: 20190617
  102. LORAZEPAM. [Concomitant]
     Active Substance: LORAZEPAM
     Indication: MUSCLE SPASMS
     Route: 060
     Dates: start: 20190707, end: 20190707
  103. PHENERGAN [Concomitant]
     Active Substance: PROMETHAZINE HYDROCHLORIDE
     Indication: INFUSION RELATED REACTION
     Route: 042
     Dates: start: 20190704, end: 20190704
  104. PEGFILGRASTIM [Concomitant]
     Active Substance: PEGFILGRASTIM
     Route: 058
     Dates: start: 20200224, end: 20200224
  105. POSACONAZOLE [Concomitant]
     Active Substance: POSACONAZOLE
     Route: 048
     Dates: start: 20200219, end: 20200220
  106. PROPOFOL. [Concomitant]
     Active Substance: PROPOFOL
     Route: 042
     Dates: start: 20190925, end: 20190925

REACTIONS (3)
  - Acute myeloid leukaemia [Not Recovered/Not Resolved]
  - Urinary tract infection [Recovering/Resolving]
  - Death [Fatal]

NARRATIVE: CASE EVENT DATE: 20190822
